FAERS Safety Report 4814311-9 (Version None)
Quarter: 2005Q4

REPORT INFORMATION
  Report Type: 
  Country: None (occurrence: None)
  Receive Date: 20051028
  Receipt Date: 20050802
  Transmission Date: 20060501
  Serious: Yes (Other)
  Sender: FDA-Public Use
  Company Number: US-GLAXOSMITHKLINE-A0568672A

PATIENT
  Age: 46 Year
  Sex: Female

DRUGS (6)
  1. ADVAIR DISKUS 100/50 [Suspect]
     Indication: ASTHMA
     Route: 055
  2. COUGH SYRUP [Concomitant]
     Route: 048
  3. SINUS PILLS [Concomitant]
     Route: 048
  4. PREDNISONE [Concomitant]
  5. COMBIVENT [Concomitant]
  6. ALBUTEROL [Concomitant]

REACTIONS (8)
  - ASTHMA [None]
  - CHEST PAIN [None]
  - CONSTIPATION [None]
  - DENTAL DISCOMFORT [None]
  - INSOMNIA [None]
  - TREMOR [None]
  - TRISMUS [None]
  - VISION BLURRED [None]
